FAERS Safety Report 17273872 (Version 1)
Quarter: 2020Q1

REPORT INFORMATION
  Report Type: Spontaneous
  Country: US (occurrence: US)
  Receive Date: 20191225
  Receipt Date: 20191225
  Transmission Date: 20200409
  Serious: No
  Sender: FDA-Public Use
  Company Number: None

PATIENT
  Sex: Female

DRUGS (1)
  1. ENBREL [Suspect]
     Active Substance: ETANERCEPT
     Indication: RHEUMATOID ARTHRITIS
     Dosage: ?          OTHER ROUTE:UNDER THE SKIN?
     Dates: start: 20190715

REACTIONS (3)
  - Sinus disorder [None]
  - Chronic obstructive pulmonary disease [None]
  - Injection site pain [None]
